FAERS Safety Report 23941625 (Version 1)
Quarter: 2024Q2

REPORT INFORMATION
  Report Type: Spontaneous
  Country: CN (occurrence: CN)
  Receive Date: 20240605
  Receipt Date: 20240605
  Transmission Date: 20240716
  Serious: Yes (Life-Threatening, Hospitalization, Other)
  Sender: FDA-Public Use
  Company Number: None

PATIENT
  Age: 87 Year
  Sex: Female

DRUGS (6)
  1. DONEPEZIL HYDROCHLORIDE [Interacting]
     Active Substance: DONEPEZIL HYDROCHLORIDE
     Indication: Dementia Alzheimer^s type
     Dosage: 5 MG, ONCE PER DAY
     Route: 048
     Dates: start: 2015, end: 20230315
  2. NAMENDA XR [Interacting]
     Active Substance: MEMANTINE HYDROCHLORIDE
     Indication: Dementia Alzheimer^s type
     Dosage: 10 MG, ONCE PER DAY
     Route: 065
     Dates: start: 20230315
  3. NAMENDA XR [Interacting]
     Active Substance: MEMANTINE HYDROCHLORIDE
     Dosage: 5 MG, ONCE PER DAY
     Route: 065
     Dates: start: 202212
  4. AMLODIPINE\VALSARTAN [Concomitant]
     Active Substance: AMLODIPINE\VALSARTAN
     Indication: Hypertension
     Dosage: UNK,  UNK
     Route: 065
  5. INSULIN ASPART [Concomitant]
     Active Substance: INSULIN ASPART
     Indication: Type 2 diabetes mellitus
     Dosage: UNK,  UNK
     Route: 065
     Dates: start: 2003
  6. VOGLIBOSE [Concomitant]
     Active Substance: VOGLIBOSE
     Indication: Type 2 diabetes mellitus
     Dosage: UNK, UNK
     Dates: start: 2003

REACTIONS (6)
  - Drug interaction [Recovered/Resolved]
  - Toxicity to various agents [Recovered/Resolved]
  - Drug level increased [Unknown]
  - Coma [Recovered/Resolved]
  - Oedema peripheral [Unknown]
  - Face oedema [Unknown]

NARRATIVE: CASE EVENT DATE: 20230301
